FAERS Safety Report 18357998 (Version 2)
Quarter: 2020Q4

REPORT INFORMATION
  Report Type: Spontaneous
  Country: SA (occurrence: SA)
  Receive Date: 20201007
  Receipt Date: 20201013
  Transmission Date: 20210114
  Serious: Yes (Other)
  Sender: FDA-Public Use
  Company Number: SA-BRISTOL-MYERS SQUIBB COMPANY-BMS-2020-081570

PATIENT
  Age: 57 Year
  Sex: Female

DRUGS (1)
  1. DASATINIB. [Suspect]
     Active Substance: DASATINIB
     Indication: CHRONIC MYELOID LEUKAEMIA
     Dosage: 100 MILLIGRAM, QD
     Route: 065
     Dates: start: 20100307

REACTIONS (6)
  - Diarrhoea [Unknown]
  - Pleural effusion [Unknown]
  - Hepatosplenomegaly [Recovered/Resolved]
  - Portal hypertension [Unknown]
  - Hypothyroidism [Unknown]
  - Oedema [Unknown]
